FAERS Safety Report 25883846 (Version 1)
Quarter: 2025Q4

REPORT INFORMATION
  Report Type: Spontaneous
  Country: GB (occurrence: GB)
  Receive Date: 20251006
  Receipt Date: 20251006
  Transmission Date: 20260118
  Serious: Yes (Hospitalization, Disabling, Other)
  Sender: TEVA
  Company Number: None

PATIENT
  Age: 83 Year
  Sex: Male

DRUGS (1)
  1. RISPERIDONE [Suspect]
     Active Substance: RISPERIDONE
     Indication: Neuropsychological symptoms
     Route: 065
     Dates: start: 20250114, end: 20250620

REACTIONS (3)
  - Dysphagia [Recovered/Resolved]
  - Tremor [Recovered/Resolved]
  - Propulsive gait [Recovered/Resolved]

NARRATIVE: CASE EVENT DATE: 20250422
